FAERS Safety Report 15885878 (Version 4)
Quarter: 2020Q2

REPORT INFORMATION
  Report Type: Report from Study
  Country: BE (occurrence: BE)
  Receive Date: 20190129
  Receipt Date: 20200630
  Transmission Date: 20200713
  Serious: Yes (Other)
  Sender: FDA-Public Use
  Company Number: BE-PFIZER INC-2019034430

PATIENT
  Age: 68 Year
  Sex: Female
  Weight: 78 kg

DRUGS (4)
  1. BEVACIZUMAB. [Suspect]
     Active Substance: BEVACIZUMAB
     Indication: COLORECTAL CANCER METASTATIC
     Dosage: 1 (UNITS NOT REPORTED) EVERY 2 WEEKS
     Route: 042
     Dates: start: 20181004
  2. IRINOTECAN HCL [Suspect]
     Active Substance: IRINOTECAN HYDROCHLORIDE
     Indication: COLORECTAL CANCER METASTATIC
     Dosage: 1 (UNITS NOT REPORTED) EVERY 2 WEEKS
     Route: 042
     Dates: start: 20181004
  3. LEUCOVORIN [FOLINIC ACID] [Suspect]
     Active Substance: LEUCOVORIN
     Indication: COLORECTAL CANCER METASTATIC
     Dosage: 1 (UNITS NOT REPORTED) EVERY 2 WEEKS
     Route: 042
     Dates: start: 20181004
  4. FLUOROURACIL. [Suspect]
     Active Substance: FLUOROURACIL
     Indication: COLORECTAL CANCER METASTATIC
     Dosage: 1 (UNITS NOT REPORTED), EVERY 2 WEEKS
     Route: 042
     Dates: start: 20181004

REACTIONS (5)
  - Neutropenia [Recovered/Resolved]
  - Diarrhoea [Not Recovered/Not Resolved]
  - Mucosal inflammation [Not Recovered/Not Resolved]
  - Anal haemorrhage [Recovered/Resolved]
  - Asthenia [Not Recovered/Not Resolved]

NARRATIVE: CASE EVENT DATE: 20181018
